FAERS Safety Report 5310743-3 (Version None)
Quarter: 2007Q2

REPORT INFORMATION
  Report Type: 
  Country: None (occurrence: None)
  Receive Date: 20070428
  Receipt Date: 20070416
  Transmission Date: 20071010
  Serious: Yes (Hospitalization)
  Sender: FDA-Public Use
  Company Number: FR-PFIZER INC-2007030168

PATIENT
  Age: 82 Year
  Sex: Female

DRUGS (11)
  1. TRIFLUCAN [Suspect]
  2. AUGMENTIN '125' [Suspect]
  3. NEXIUM [Suspect]
     Dosage: DAILY DOSE:40MG
     Route: 048
     Dates: start: 20070225, end: 20070310
  4. AZATHIOPRINE SODIUM [Suspect]
     Indication: COLITIS
     Dosage: TEXT:2 TABLETS
     Route: 048
     Dates: end: 20070225
  5. CORTANCYL [Suspect]
     Indication: COLITIS
  6. CHRONADALATE [Suspect]
  7. ACTISKENAN [Concomitant]
  8. LOVENOX [Concomitant]
     Indication: OESOPHAGEAL ULCER
  9. GELOX [Concomitant]
  10. NOVONORM [Concomitant]
  11. COZAAR [Concomitant]

REACTIONS (3)
  - ANAEMIA [None]
  - LYMPHOPENIA [None]
  - NEUTROPENIA [None]
